FAERS Safety Report 22142927 (Version 1)
Quarter: 2023Q1

REPORT INFORMATION
  Report Type: Spontaneous
  Country: US (occurrence: US)
  Receive Date: 20230327
  Receipt Date: 20230327
  Transmission Date: 20230418
  Serious: No
  Sender: FDA-Public Use
  Company Number: US-PFIZER INC-202300125206

PATIENT
  Age: 67 Year
  Sex: Male
  Weight: 90.72 kg

DRUGS (2)
  1. TESTOSTERONE [Suspect]
     Active Substance: TESTOSTERONE
     Indication: Blood testosterone decreased
     Dosage: HALF OF VIAL, WEEKLY
  2. TESTOSTERONE [Suspect]
     Active Substance: TESTOSTERONE
     Dosage: HALF OF VIAL, WEEKLY

REACTIONS (3)
  - Haematocrit increased [Unknown]
  - Blood testosterone increased [Unknown]
  - Off label use [Unknown]

NARRATIVE: CASE EVENT DATE: 20230301
